FAERS Safety Report 9168920 (Version 1)
Quarter: 2013Q1

REPORT INFORMATION
  Report Type: Spontaneous
  Country: US (occurrence: None)
  Receive Date: 20130314
  Receipt Date: 20130314
  Transmission Date: 20140127
  Serious: Yes (Hospitalization, Other)
  Sender: FDA-Public Use
  Company Number: None

PATIENT
  Sex: Female
  Weight: 54.43 kg

DRUGS (3)
  1. SORIATANE [Suspect]
     Dates: start: 20130128, end: 20130131
  2. SYNTHROID [Suspect]
  3. MINOCYCLINE [Suspect]

REACTIONS (10)
  - Headache [None]
  - Vision blurred [None]
  - Dizziness [None]
  - Pruritus generalised [None]
  - Chest pain [None]
  - Swelling [None]
  - Dyspnoea [None]
  - Urticaria [None]
  - Tremor [None]
  - Amnesia [None]
